FAERS Safety Report 6761159-4 (Version None)
Quarter: 2010Q2

REPORT INFORMATION
  Report Type: 
  Country: None (occurrence: None)
  Receive Date: 20100604
  Receipt Date: 20100526
  Transmission Date: 20101027
  Serious: Yes (Hospitalization, Other)
  Sender: FDA-Public Use
  Company Number: 2010SP001482

PATIENT
  Age: 50 Year
  Sex: Female
  Weight: 84 kg

DRUGS (12)
  1. CICLESONIDE HFA [Suspect]
     Indication: RHINITIS PERENNIAL
     Dosage: 160 UG ;BID; INHALATION
     Route: 055
     Dates: start: 20091016, end: 20100420
  2. PRILOSEC [Concomitant]
  3. MULTI-VITAMINS [Concomitant]
  4. STOOL SOFTENER [Concomitant]
  5. TRILYTE [Concomitant]
  6. HYDROCHLOROTHIAZIDE [Concomitant]
  7. VITAMIN B12 /00056201/ [Concomitant]
  8. OSCAL /00108001/ [Concomitant]
  9. CHLORASEPTIC [Concomitant]
  10. EXCEDRIN /00214201/ [Concomitant]
  11. TYLENOL (CAPLET) [Concomitant]
  12. MUCINEX [Concomitant]

REACTIONS (11)
  - BURNING SENSATION [None]
  - DIARRHOEA [None]
  - HAEMOPTYSIS [None]
  - HYPOAESTHESIA [None]
  - INTESTINAL OBSTRUCTION [None]
  - MESENTERIC VEIN THROMBOSIS [None]
  - NAUSEA [None]
  - PARAESTHESIA [None]
  - PORTAL VEIN THROMBOSIS [None]
  - SPLENIC VEIN THROMBOSIS [None]
  - VOMITING [None]
